FAERS Safety Report 8917983 (Version 2)
Quarter: 2013Q2

REPORT INFORMATION
  Report Type: Spontaneous
  Country: US (occurrence: US)
  Receive Date: 20121120
  Receipt Date: 20130620
  Transmission Date: 20140414
  Serious: Yes (Disabling)
  Sender: FDA-Public Use
  Company Number: US-ASTRAZENECA-2012SE16498

PATIENT
  Age: 71 Year
  Sex: Male
  Weight: 93.4 kg

DRUGS (13)
  1. NEXIUM [Suspect]
     Indication: GASTROOESOPHAGEAL REFLUX DISEASE
     Route: 048
  2. NEXIUM [Suspect]
     Indication: GASTROOESOPHAGEAL REFLUX DISEASE
     Route: 048
     Dates: start: 2003, end: 201112
  3. NEXIUM [Suspect]
     Indication: GASTROOESOPHAGEAL REFLUX DISEASE
     Route: 048
     Dates: start: 201112, end: 20130528
  4. TOPROL XL [Suspect]
     Route: 048
  5. PLAVIX [Concomitant]
  6. CHOLESTEROL MEDICATION [Concomitant]
  7. PHENERGAN [Concomitant]
     Indication: NAUSEA
     Dates: start: 20130608
  8. XANAX [Concomitant]
     Indication: ANXIETY
     Dates: start: 2004
  9. ALEVE [Concomitant]
     Indication: PAIN
     Dosage: PRN
  10. ADVIL [Concomitant]
     Indication: PAIN
     Dosage: PRN
  11. KEFLEX [Concomitant]
     Indication: INFECTION
     Dates: start: 20130605
  12. LORTAB [Concomitant]
     Indication: PAIN
     Dates: start: 20130505, end: 20130505
  13. PYRIDIUM [Concomitant]
     Indication: MUSCLE SPASMS
     Dates: start: 201305, end: 201306

REACTIONS (4)
  - Fall [Not Recovered/Not Resolved]
  - Pain [Unknown]
  - Abdominal pain upper [Not Recovered/Not Resolved]
  - Intentional drug misuse [Unknown]
